FAERS Safety Report 17768059 (Version 1)
Quarter: 2020Q2

REPORT INFORMATION
  Report Type: Spontaneous
  Country: CH (occurrence: CH)
  Receive Date: 20200511
  Receipt Date: 20200511
  Transmission Date: 20200714
  Serious: Yes (Death)
  Sender: FDA-Public Use
  Company Number: CH-ELI_LILLY_AND_COMPANY-CH202005001745

PATIENT
  Sex: Male

DRUGS (3)
  1. LARTRUVO [Suspect]
     Active Substance: OLARATUMAB
     Dosage: 590 UNK
     Route: 042
     Dates: start: 20180130
  2. DOXORUBICIN [Concomitant]
     Active Substance: DOXORUBICIN
  3. LARTRUVO [Suspect]
     Active Substance: OLARATUMAB
     Indication: PRODUCT USED FOR UNKNOWN INDICATION
     Dosage: 1190 MG, SINGLE
     Route: 042
     Dates: start: 20180124

REACTIONS (1)
  - Death [Fatal]

NARRATIVE: CASE EVENT DATE: 201912
